FAERS Safety Report 8232289-5 (Version None)
Quarter: 2012Q1

REPORT INFORMATION
  Report Type: 
  Country: None (occurrence: None)
  Receive Date: 20120323
  Receipt Date: 20120319
  Transmission Date: 20120608
  Serious: No
  Sender: FDA-Public Use
  Company Number: US-PFIZER INC-2012072681

PATIENT
  Sex: Female
  Weight: 102 kg

DRUGS (5)
  1. ZYRTEC [Concomitant]
     Indication: HYPERSENSITIVITY
     Dosage: 10 MG, DAILY
  2. PRISTIQ [Suspect]
     Indication: ANXIETY
     Dosage: 15 MG, DAILY
     Route: 048
     Dates: start: 20111101, end: 20120301
  3. LEXAPRO [Suspect]
     Indication: ANXIETY
     Dosage: 10 MG, DAILY
     Dates: start: 20120301
  4. PRISTIQ [Suspect]
     Indication: IRRITABLE BOWEL SYNDROME
  5. LEXAPRO [Suspect]
     Indication: IRRITABLE BOWEL SYNDROME

REACTIONS (5)
  - WITHDRAWAL SYNDROME [None]
  - DIZZINESS [None]
  - HEADACHE [None]
  - NAUSEA [None]
  - FEELING ABNORMAL [None]
